FAERS Safety Report 7771866-2 (Version None)
Quarter: 2011Q3

REPORT INFORMATION
  Report Type: 
  Country: None (occurrence: None)
  Receive Date: 20110922
  Receipt Date: 20110412
  Transmission Date: 20111222
  Serious: Yes (Hospitalization)
  Sender: FDA-Public Use
  Company Number: US-ASTRAZENECA-2010SE54749

PATIENT
  Age: 49 Year
  Sex: Female
  Weight: 59.9 kg

DRUGS (4)
  1. CELEXA [Concomitant]
  2. WELLBUTRIN [Concomitant]
  3. SEROQUEL [Suspect]
     Indication: DEPRESSION
     Route: 048
     Dates: start: 20090101
  4. SEROQUEL [Suspect]
     Route: 048

REACTIONS (3)
  - ANXIETY [None]
  - SUICIDAL IDEATION [None]
  - DRUG DOSE OMISSION [None]
